FAERS Safety Report 5721847-5 (Version None)
Quarter: 2008Q2

REPORT INFORMATION
  Report Type: 
  Country: None (occurrence: None)
  Receive Date: 20080429
  Receipt Date: 20080429
  Transmission Date: 20081010
  Serious: Yes (Hospitalization, Other)
  Sender: FDA-Public Use
  Company Number: BR-ABBOTT-08P-020-0432603-00

PATIENT
  Age: 38 Year
  Sex: Female

DRUGS (14)
  1. HUMIRA [Suspect]
     Indication: RHEUMATOID ARTHRITIS
     Route: 058
     Dates: start: 20070927, end: 20080108
  2. HUMIRA [Interacting]
     Route: 058
  3. UNKNOWN ANTIBIOTIC [Interacting]
     Indication: LOCALISED INFECTION
  4. UNKNOWN ANTIBIOTIC [Interacting]
  5. METHOTREXATE [Concomitant]
     Indication: RHEUMATOID ARTHRITIS
     Route: 048
  6. PREDNISONE [Concomitant]
     Indication: RHEUMATOID ARTHRITIS
     Route: 048
  7. FLUOXETINE [Concomitant]
     Indication: DEPRESSION
     Route: 048
  8. OMEPRAZOLE [Concomitant]
     Indication: PROPHYLAXIS AGAINST GASTROINTESTINAL ULCER
     Route: 048
     Dates: start: 20070701
  9. DICLOFENAC SODIUM [Concomitant]
     Indication: RHEUMATOID ARTHRITIS
     Route: 048
     Dates: start: 20070701
  10. GLUCOSAMINE AND CHONDROITIN [Concomitant]
     Indication: DRUG USE FOR UNKNOWN INDICATION
     Dates: start: 20080101
  11. LEVOTHYROXINE SODIUM [Concomitant]
     Indication: HYPOTHYROIDISM
     Route: 048
  12. FOLIC ACID [Concomitant]
     Indication: RHEUMATOID ARTHRITIS
     Dates: start: 20070901
  13. MOMETASONE FUROATE [Concomitant]
     Indication: RHINITIS ALLERGIC
  14. DIMENHYDRINATE [Concomitant]
     Indication: NAUSEA

REACTIONS (5)
  - DRUG INTERACTION [None]
  - LOCALISED INFECTION [None]
  - NAUSEA [None]
  - OSTEOMYELITIS [None]
  - VOMITING [None]
